FAERS Safety Report 24555213 (Version 1)
Quarter: 2024Q4

REPORT INFORMATION
  Report Type: Spontaneous
  Country: US (occurrence: US)
  Receive Date: 20241028
  Receipt Date: 20241028
  Transmission Date: 20250114
  Serious: Yes (Hospitalization)
  Sender: TEVA
  Company Number: US-TEVA-VS-3257921

PATIENT
  Age: 65 Year

DRUGS (1)
  1. UZEDY [Suspect]
     Active Substance: RISPERIDONE
     Indication: Product used for unknown indication
     Dosage: EVERY 30-60
     Route: 065

REACTIONS (2)
  - Hypothermia [Unknown]
  - Inappropriate schedule of product administration [Unknown]
